FAERS Safety Report 9741089 (Version 2)
Quarter: 2014Q2

REPORT INFORMATION
  Report Type: Spontaneous
  Country: US (occurrence: US)
  Receive Date: 20131209
  Receipt Date: 20140415
  Transmission Date: 20141212
  Serious: No
  Sender: FDA-Public Use
  Company Number: US-009507513-1312USA001032

PATIENT
  Sex: Male

DRUGS (6)
  1. NASONEX [Suspect]
     Indication: HYPERSENSITIVITY
     Dosage: 50MCG/ 2 SPRAYS IN EACH NOSTRIL ONCE DAILY
     Route: 045
     Dates: start: 20130403, end: 20131203
  2. ADVAIR [Concomitant]
     Indication: CHRONIC OBSTRUCTIVE PULMONARY DISEASE
     Dosage: UNK
     Route: 048
     Dates: start: 20111221, end: 20140124
  3. VENTOLIN (ALBUTEROL SULFATE) [Concomitant]
     Indication: CHRONIC OBSTRUCTIVE PULMONARY DISEASE
     Dosage: 2, QID
     Route: 048
  4. FUROSEMIDE [Concomitant]
     Indication: HYPERTENSION
     Dosage: 20 MG DAILY
     Route: 048
     Dates: start: 20120116
  5. PRINIVIL [Concomitant]
     Indication: HYPERTENSION
     Dosage: 10 MG DAILY
     Route: 048
     Dates: start: 20131112
  6. PRIMIDONE [Concomitant]
     Indication: CARDIAC DISORDER
     Dosage: 250 DAILY
     Route: 048
     Dates: start: 20131102

REACTIONS (3)
  - Drug dose omission [Unknown]
  - Product container issue [Unknown]
  - No adverse event [Unknown]
